FAERS Safety Report 7727381-5 (Version None)
Quarter: 2011Q3

REPORT INFORMATION
  Report Type: 
  Country: None (occurrence: None)
  Receive Date: 20110902
  Receipt Date: 20110830
  Transmission Date: 20111222
  Serious: Yes (Other)
  Sender: FDA-Public Use
  Company Number: US-PFIZER INC-2011202251

PATIENT
  Sex: Male
  Weight: 104.3 kg

DRUGS (3)
  1. NEURONTIN [Suspect]
     Indication: FIBROMYALGIA
  2. NEURONTIN [Suspect]
     Indication: NERVE INJURY
     Dosage: 900 MG, 3X/DAY
     Route: 048
  3. LYRICA [Concomitant]
     Dosage: UNK

REACTIONS (7)
  - AMNESIA [None]
  - NEUROPATHY PERIPHERAL [None]
  - VISUAL ACUITY REDUCED [None]
  - AGGRESSION [None]
  - HAEMORRHAGE [None]
  - AGITATION [None]
  - SELF INJURIOUS BEHAVIOUR [None]
